FAERS Safety Report 14891988 (Version 8)
Quarter: 2022Q3

REPORT INFORMATION
  Report Type: Report from Study
  Country: BR (occurrence: None)
  Receive Date: 20180514
  Receipt Date: 20220912
  Transmission Date: 20221027
  Serious: Yes (Life-Threatening, Hospitalization)
  Sender: FDA-Public Use
  Company Number: BR-ROCHE-2121578

PATIENT
  Age: 68 Year
  Sex: Female
  Weight: 65 kg

DRUGS (19)
  1. ATEZOLIZUMAB [Suspect]
     Active Substance: ATEZOLIZUMAB
     Indication: Triple negative breast cancer
     Dosage: DATE OF MOST RECENT DOSE PRIOR TO EVENT ONSET ON 25/APR/2018 AT 14:30
     Route: 042
     Dates: start: 20171129
  2. PACLITAXEL [Suspect]
     Active Substance: PACLITAXEL
     Indication: Triple negative breast cancer
     Dosage: DATE OF MOST RECENT DOSE (201.25 MG) PRIOR TO EVENT ONSET ON 15/FEB/2018 AT 17:05.
     Route: 042
     Dates: start: 20171129
  3. DOXORUBICIN [Suspect]
     Active Substance: DOXORUBICIN
     Indication: Triple negative breast cancer
     Dosage: DATE OF MOST RECENT DOSE (95.4 MG) PRIOR TO EVENT ONSET ON 25/APR/2018 AT 16:15
     Route: 042
     Dates: start: 20180301
  4. CYCLOPHOSPHAMIDE [Suspect]
     Active Substance: CYCLOPHOSPHAMIDE
     Indication: Triple negative breast cancer
     Dosage: DATE OF MOST RECENT DOSE (954 MG) PRIOR TO EVENT ONSET ON 25/APR/2018 AT 16:30.
     Route: 042
     Dates: start: 20180301
  5. DIPYRONE [Concomitant]
     Active Substance: DIPYRONE
     Indication: Pain
     Dates: start: 20180506, end: 20180510
  6. FEDRILATO [Concomitant]
     Indication: Cough
     Dates: start: 20180118
  7. IBUPROFEN [Concomitant]
     Active Substance: IBUPROFEN
     Indication: Ear pain
     Dates: start: 20180321
  8. PURAN [Concomitant]
     Active Substance: LEVOTHYROXINE SODIUM
     Indication: Hypothyroidism
     Dates: start: 20180411
  9. MINERAL OIL [Concomitant]
     Active Substance: MINERAL OIL
     Indication: Constipation
     Dates: start: 20180506, end: 20180507
  10. RANITIDINE [Concomitant]
     Active Substance: RANITIDINE
     Indication: Dyspepsia
     Dates: start: 20180506, end: 20180507
  11. PIPERACILLIN SODIUM\TAZOBACTAM SODIUM [Concomitant]
     Active Substance: PIPERACILLIN SODIUM\TAZOBACTAM SODIUM
     Indication: Infection
     Dates: start: 20180506, end: 20180507
  12. TRAMADOL [Concomitant]
     Active Substance: TRAMADOL
     Indication: Pain
     Dates: start: 20180506, end: 20180507
  13. ONDANSETRON [Concomitant]
     Active Substance: ONDANSETRON
     Indication: Dyspepsia
     Dates: start: 20180508, end: 20180510
  14. ONDANSETRON [Concomitant]
     Active Substance: ONDANSETRON
     Dates: start: 20180411, end: 20180411
  15. ONDANSETRON [Concomitant]
     Active Substance: ONDANSETRON
     Dates: start: 20180425, end: 20180425
  16. ACETAMINOPHEN [Concomitant]
     Active Substance: ACETAMINOPHEN
     Indication: Pain
     Dates: start: 20180508, end: 20180510
  17. ESCITALOPRAM [Concomitant]
     Active Substance: ESCITALOPRAM OXALATE
     Indication: Anxiety
     Dates: start: 20180506, end: 20180510
  18. BACTRIM [Concomitant]
     Active Substance: SULFAMETHOXAZOLE\TRIMETHOPRIM
     Indication: Dysuria
     Dates: start: 20180411, end: 20180416
  19. LACTULOSE [Concomitant]
     Active Substance: LACTULOSE
     Indication: Constipation
     Dates: start: 20180508, end: 20180508

REACTIONS (1)
  - Febrile neutropenia [Recovered/Resolved]

NARRATIVE: CASE EVENT DATE: 20180506
